FAERS Safety Report 12954504 (Version 1)
Quarter: 2016Q4

REPORT INFORMATION
  Report Type: Spontaneous
  Country: CN (occurrence: CN)
  Receive Date: 20161118
  Receipt Date: 20161118
  Transmission Date: 20170207
  Serious: Yes (Other)
  Sender: FDA-Public Use
  Company Number: CN-B.I. PHARMACEUTICALS,INC./RIDGEFIELD-2016-BI-075694

PATIENT
  Age: 9 Year
  Sex: Male
  Weight: 34 kg

DRUGS (2)
  1. PULMICORT TURBUHALER [Concomitant]
     Active Substance: BUDESONIDE
     Indication: TONSILLITIS
     Route: 055
     Dates: start: 20160905, end: 20160905
  2. ATROVENT [Suspect]
     Active Substance: IPRATROPIUM BROMIDE
     Indication: TONSILLITIS
     Route: 055
     Dates: start: 20160905, end: 20160905

REACTIONS (1)
  - Headache [Recovering/Resolving]

NARRATIVE: CASE EVENT DATE: 20160905
